FAERS Safety Report 13428706 (Version 4)
Quarter: 2017Q2

REPORT INFORMATION
  Report Type: Spontaneous
  Country: IL (occurrence: IL)
  Receive Date: 20170411
  Receipt Date: 20170519
  Transmission Date: 20170830
  Serious: Yes (Death, Hospitalization, Other)
  Sender: FDA-Public Use
  Company Number: IL-BAYER-2017-063604

PATIENT
  Sex: Female

DRUGS (1)
  1. ASPIRIN. [Suspect]
     Active Substance: ASPIRIN

REACTIONS (4)
  - Cerebrovascular accident [None]
  - Intestinal ischaemia [None]
  - Bacterial infection [Fatal]
  - Blindness [None]
